FAERS Safety Report 25700226 (Version 1)
Quarter: 2025Q3

REPORT INFORMATION
  Report Type: Spontaneous
  Country: US (occurrence: US)
  Receive Date: 20250819
  Receipt Date: 20250819
  Transmission Date: 20251021
  Serious: No
  Sender: ARCUTIS
  Company Number: US-ARCUTIS BIOTHERAPEUTICS INC-2025AER000482

PATIENT

DRUGS (1)
  1. ZORYVE [Suspect]
     Active Substance: ROFLUMILAST
     Indication: Skin disorder
     Dosage: UNK, QD
     Route: 061

REACTIONS (3)
  - Pain of skin [Unknown]
  - Eye irritation [Unknown]
  - Off label use [Unknown]
